FAERS Safety Report 8216515-4 (Version None)
Quarter: 2012Q1

REPORT INFORMATION
  Report Type: 
  Country: None (occurrence: None)
  Receive Date: 20120314
  Receipt Date: 20120227
  Transmission Date: 20120608
  Serious: Yes (Life-Threatening)
  Sender: FDA-Public Use
  Company Number: FK201200639

PATIENT
  Age: 37 Year
  Sex: Female

DRUGS (4)
  1. SEVOFLURANE [Suspect]
     Indication: PRODUCT USED FOR UNKNOWN INDICATION
  2. NITROUS OXIDE (NITROUS OXIDE ) (NITROUS OXIDE ) [Concomitant]
  3. PROPOFOL [Suspect]
     Indication: GENERAL ANAESTHESIA
  4. VECURONIUM (VECURONIUM) (VECURONIUM) [Concomitant]

REACTIONS (3)
  - TACHYCARDIA [None]
  - HYPERTHERMIA MALIGNANT [None]
  - END-TIDAL CO2 INCREASED [None]
